FAERS Safety Report 9792587 (Version 1)
Quarter: 2013Q4

REPORT INFORMATION
  Report Type: Spontaneous
  Country: US (occurrence: None)
  Receive Date: 20131231
  Receipt Date: 20131231
  Transmission Date: 20140711
  Serious: No
  Sender: FDA-Public Use
  Company Number: None

PATIENT
  Age: 60 Year
  Sex: Female
  Weight: 72.58 kg

DRUGS (9)
  1. CITIRIZINE HYDROCHLORIDE [Suspect]
     Indication: MULTIPLE ALLERGIES
     Route: 048
     Dates: start: 20070101, end: 20131207
  2. LOSARTAN [Concomitant]
  3. HCTZ [Concomitant]
  4. VIT D [Concomitant]
  5. MOBIC [Concomitant]
  6. GLUCOSAMINE CHONDROITIN [Concomitant]
  7. CALCIUM [Concomitant]
  8. OCUVITE [Concomitant]
  9. ASPIRIN [Concomitant]

REACTIONS (3)
  - Pruritus generalised [None]
  - Insomnia [None]
  - Skin haemorrhage [None]
